FAERS Safety Report 12425842 (Version 1)
Quarter: 2016Q2

REPORT INFORMATION
  Report Type: Spontaneous
  Country: US (occurrence: US)
  Receive Date: 20160601
  Receipt Date: 20160601
  Transmission Date: 20160815
  Serious: No
  Sender: FDA-Public Use
  Company Number: US-PFIZER INC-2016262447

PATIENT
  Age: 50 Year
  Sex: Female
  Weight: 99.32 kg

DRUGS (1)
  1. METHOTREXATE SODIUM. [Suspect]
     Active Substance: METHOTREXATE SODIUM
     Indication: RHEUMATOID ARTHRITIS
     Dosage: 15 MG, WEEKLY (2.5 MG TABLET TAKE 6 TABLETS EVERY WEEK)

REACTIONS (2)
  - Musculoskeletal pain [Unknown]
  - Drug effect incomplete [Unknown]
